FAERS Safety Report 14098911 (Version 3)
Quarter: 2018Q2

REPORT INFORMATION
  Report Type: Spontaneous
  Country: US (occurrence: US)
  Receive Date: 20171017
  Receipt Date: 20180412
  Transmission Date: 20180711
  Serious: Yes (Hospitalization, Other)
  Sender: FDA-Public Use
  Company Number: US-GLAXOSMITHKLINE-US2017GSK158662

PATIENT
  Age: 39 Year
  Sex: Female
  Weight: 95.7 kg

DRUGS (3)
  1. FLOLAN [Suspect]
     Active Substance: EPOPROSTENOL SODIUM
     Dosage: UNK
  2. FLOLAN [Suspect]
     Active Substance: EPOPROSTENOL SODIUM
     Indication: PULMONARY ARTERIAL HYPERTENSION
     Dosage: UNK
     Dates: start: 20170502
  3. FLOLAN [Suspect]
     Active Substance: EPOPROSTENOL SODIUM
     Indication: PULMONARY ARTERIAL HYPERTENSION
     Dosage: 60 NG/KG/MIN, CO
     Dates: start: 20110630

REACTIONS (7)
  - Hyperhidrosis [Unknown]
  - Device leakage [Recovered/Resolved]
  - Complication associated with device [Unknown]
  - Drug dose omission [Unknown]
  - Central venous catheterisation [Recovered/Resolved]
  - Device infusion issue [Unknown]
  - Mental status changes [Unknown]

NARRATIVE: CASE EVENT DATE: 20170928
